FAERS Safety Report 4847779-2 (Version None)
Quarter: 2005Q4

REPORT INFORMATION
  Report Type: 
  Country: None (occurrence: None)
  Receive Date: 20051207
  Receipt Date: 20051205
  Transmission Date: 20060501
  Serious: Yes (Hospitalization, Disabling)
  Sender: FDA-Public Use
  Company Number: GB-MERCK-0512GBR00029

PATIENT
  Age: 88 Year
  Sex: Female
  Weight: 57 kg

DRUGS (5)
  1. FOSAMAX [Suspect]
     Indication: OSTEOPOROSIS
     Route: 048
     Dates: start: 20041101, end: 20051122
  2. FUROSEMIDE [Concomitant]
     Route: 048
  3. DIGOXIN [Concomitant]
     Route: 048
  4. LEVOTHYROXINE SODIUM [Concomitant]
     Route: 048
  5. CALCIUM CARBONATE [Concomitant]
     Route: 048

REACTIONS (2)
  - JAW FRACTURE [None]
  - OSTEONECROSIS [None]
